FAERS Safety Report 9156727 (Version 1)
Quarter: 2013Q1

REPORT INFORMATION
  Report Type: Spontaneous
  Country: CH (occurrence: CH)
  Receive Date: 20130312
  Receipt Date: 20130312
  Transmission Date: 20140127
  Serious: Yes (Other)
  Sender: FDA-Public Use
  Company Number: CH-ELI_LILLY_AND_COMPANY-CH201303000156

PATIENT
  Sex: 0

DRUGS (4)
  1. CYMBALTA [Suspect]
     Dosage: 60 MG, QD
     Route: 064
  2. CYMBALTA [Suspect]
     Dosage: 60 MG, QD
     Route: 064
  3. CYMBALTA [Suspect]
     Dosage: 60 MG, QD
     Route: 063
  4. CYMBALTA [Suspect]
     Dosage: 60 MG, QD
     Route: 063

REACTIONS (4)
  - Initial insomnia [Not Recovered/Not Resolved]
  - Feeding disorder of infancy or early childhood [Not Recovered/Not Resolved]
  - Foetal exposure during pregnancy [Recovered/Resolved]
  - Exposure during breast feeding [Not Recovered/Not Resolved]
